FAERS Safety Report 9642970 (Version 1)
Quarter: 2013Q4

REPORT INFORMATION
  Report Type: Spontaneous
  Country: TW (occurrence: TW)
  Receive Date: 20131024
  Receipt Date: 20131024
  Transmission Date: 20140711
  Serious: Yes (Hospitalization, Other)
  Sender: FDA-Public Use
  Company Number: TW-ROXANE LABORATORIES, INC.-2013-RO-01719RO

PATIENT
  Age: 41 Year
  Sex: Female

DRUGS (4)
  1. RISPERIDONE [Suspect]
     Dosage: 3 MG
  2. RISPERIDONE [Suspect]
     Dosage: 3 MG
  3. QUETIAPINE FUMARATE [Suspect]
     Dosage: 200 MG
  4. OLANZAPINE [Suspect]
     Dosage: 15 MG

REACTIONS (7)
  - Tardive dyskinesia [Not Recovered/Not Resolved]
  - Dyskinesia [Not Recovered/Not Resolved]
  - Sedation [Unknown]
  - Weight increased [Unknown]
  - Hallucination, auditory [Not Recovered/Not Resolved]
  - Delusion [Unknown]
  - Violence-related symptom [Unknown]
